FAERS Safety Report 9128295 (Version 1)
Quarter: 2013Q1

REPORT INFORMATION
  Report Type: Spontaneous
  Country: US (occurrence: US)
  Receive Date: 20130228
  Receipt Date: 20130228
  Transmission Date: 20140127
  Serious: No
  Sender: FDA-Public Use
  Company Number: US-ABBOTT-12P-163-1028357-00

PATIENT
  Sex: Male

DRUGS (4)
  1. ANDROGEL [Suspect]
     Indication: BLOOD TESTOSTERONE DECREASED
     Dosage: 2 PUMPS
     Route: 061
     Dates: start: 2011, end: 2011
  2. ANDROGEL [Suspect]
     Dosage: 5 PUMPS
     Route: 061
     Dates: start: 2011
  3. CIALIS [Concomitant]
     Indication: ERECTILE DYSFUNCTION
  4. PRAVASTATIN [Concomitant]
     Indication: BLOOD CHOLESTEROL INCREASED

REACTIONS (4)
  - Breast enlargement [Not Recovered/Not Resolved]
  - Hair growth abnormal [Not Recovered/Not Resolved]
  - Blood testosterone abnormal [Recovered/Resolved]
  - Therapy change [Recovered/Resolved]
